FAERS Safety Report 9174475 (Version 1)
Quarter: 2013Q1

REPORT INFORMATION
  Report Type: Spontaneous
  Country: US (occurrence: US)
  Receive Date: 20130320
  Receipt Date: 20130320
  Transmission Date: 20140127
  Serious: No
  Sender: FDA-Public Use
  Company Number: US-MYLANLABS-2012S1011604

PATIENT
  Age: 40 Year
  Sex: Female

DRUGS (2)
  1. ESTRADIOL TRANSDERMAL SYSTEM, USP [Suspect]
     Indication: HORMONE REPLACEMENT THERAPY
     Dosage: CHANGED QW
     Route: 062
     Dates: start: 2009, end: 20120601
  2. ESTRADIOL TRANSDERMAL SYSTEM, USP [Suspect]
     Indication: HOT FLUSH
     Dosage: CHANGED QW
     Route: 062
     Dates: start: 2009, end: 20120601

REACTIONS (3)
  - Application site rash [Recovering/Resolving]
  - Application site pruritus [Recovering/Resolving]
  - Application site erythema [Recovering/Resolving]
